FAERS Safety Report 10102342 (Version 1)
Quarter: 2014Q2

REPORT INFORMATION
  Report Type: Report from Study
  Country: CA (occurrence: CA)
  Receive Date: 20140424
  Receipt Date: 20140424
  Transmission Date: 20141212
  Serious: Yes (Hospitalization)
  Sender: FDA-Public Use
  Company Number: CA-JNJFOC-20140414734

PATIENT
  Age: 38 Year
  Sex: Female

DRUGS (13)
  1. REMICADE [Suspect]
     Indication: HIDRADENITIS
     Route: 042
     Dates: start: 20120321
  2. PANTOLOC [Concomitant]
     Route: 065
  3. VENTOLIN [Concomitant]
     Route: 065
  4. CALCIUM [Concomitant]
     Dosage: DOSE: 500 (UNITS UNSPECIFIED)
     Route: 065
  5. VITAMIN D [Concomitant]
     Dosage: 10000 UN 1 TIME
     Route: 065
  6. CELEBREX [Concomitant]
     Route: 065
  7. EFFEXOR [Concomitant]
     Route: 065
  8. GLAXAL BASE [Concomitant]
     Route: 065
  9. SULFATE FERROUS [Concomitant]
     Dosage: DOSE: 300 (UNITS UNSPECIFIED)
     Route: 065
  10. PLAQUENIL [Concomitant]
     Route: 065
  11. DAPSONE [Concomitant]
     Route: 065
  12. HYDROVAL [Concomitant]
     Route: 065
  13. TYLENOL [Concomitant]
     Route: 065

REACTIONS (2)
  - Eczema [Recovered/Resolved]
  - Off label use [Unknown]
